FAERS Safety Report 4559723-6 (Version None)
Quarter: 2005Q1

REPORT INFORMATION
  Report Type: 
  Country: None (occurrence: None)
  Receive Date: 20050114
  Receipt Date: 20031204
  Transmission Date: 20050727
  Serious: Yes (Hospitalization)
  Sender: FDA-Public Use
  Company Number: BDI-005677

PATIENT
  Age: 68 Year
  Sex: Male

DRUGS (3)
  1. PROHANCE [Suspect]
     Indication: NUCLEAR MAGNETIC RESONANCE IMAGING
     Dosage: IV
     Route: 042
     Dates: start: 20031126, end: 20031126
  2. PROHANCE [Suspect]
     Indication: PROSTATE CANCER
     Dosage: IV
     Route: 042
     Dates: start: 20031126, end: 20031126
  3. CHEMOTHERAPY [Concomitant]

REACTIONS (1)
  - HYPERSENSITIVITY [None]
